FAERS Safety Report 5662249-X (Version None)
Quarter: 2008Q1

REPORT INFORMATION
  Report Type: 
  Country: None (occurrence: None)
  Receive Date: 20080312
  Receipt Date: 20080229
  Transmission Date: 20080703
  Serious: Yes (Other)
  Sender: FDA-Public Use
  Company Number: FR-PFIZER INC-2008010595

PATIENT
  Sex: Male
  Weight: 105 kg

DRUGS (10)
  1. CHANTIX [Suspect]
     Indication: SMOKING CESSATION THERAPY
     Dosage: DAILY DOSE:2MG
     Route: 048
     Dates: start: 20071107, end: 20080114
  2. ALL OTHER THERAPEUTIC PRODUCTS [Concomitant]
  3. LAMICTAL [Concomitant]
     Indication: BIPOLAR DISORDER
     Dosage: DAILY DOSE:150MG
     Route: 048
  4. DEROXAT [Concomitant]
     Indication: BIPOLAR DISORDER
     Dosage: DAILY DOSE:20MG
     Route: 048
     Dates: start: 20070601, end: 20071214
  5. DEROXAT [Concomitant]
     Indication: DEPRESSION
  6. TERALITHE [Concomitant]
     Indication: BIPOLAR DISORDER
     Dosage: DAILY DOSE:400MG
     Route: 048
     Dates: start: 20071117, end: 20080107
  7. GLUCOPHAGE [Concomitant]
     Indication: DIABETES MELLITUS
     Dosage: DAILY DOSE:2GRAM
     Route: 048
  8. EZETIMIBE/SIMVASTATIN [Concomitant]
     Indication: BLOOD CHOLESTEROL
     Dosage: TEXT:10/20MG DAILY
     Route: 048
  9. NEBILOX [Concomitant]
     Indication: ARRHYTHMIA
     Dosage: DAILY DOSE:5MG
     Route: 048
  10. SINTROM [Concomitant]
     Indication: ATRIAL FIBRILLATION
     Dosage: DAILY DOSE:4MG
     Route: 048

REACTIONS (7)
  - AGGRESSION [None]
  - BIPOLAR DISORDER [None]
  - IMPAIRED DRIVING ABILITY [None]
  - IRRITABILITY [None]
  - PSYCHOMOTOR HYPERACTIVITY [None]
  - TINNITUS [None]
  - VERTIGO [None]
